FAERS Safety Report 17957585 (Version 1)
Quarter: 2020Q2

REPORT INFORMATION
  Report Type: Spontaneous
  Country: PL (occurrence: PL)
  Receive Date: 20200629
  Receipt Date: 20200629
  Transmission Date: 20200714
  Serious: Yes (Hospitalization, Other)
  Sender: FDA-Public Use
  Company Number: NVSC2020PL176137

PATIENT
  Age: 63 Year
  Sex: Male

DRUGS (4)
  1. PEMETREXED DISODIUM [Suspect]
     Active Substance: PEMETREXED DISODIUM
     Indication: LUNG ADENOCARCINOMA STAGE IV
     Dosage: 500 MG/M2, Q3W
     Route: 042
     Dates: start: 20191219, end: 20200214
  2. CARBOPLATIN. [Suspect]
     Active Substance: CARBOPLATIN
     Indication: LUNG ADENOCARCINOMA STAGE IV
     Dosage: UNK, Q3W (AUC OF 5 MG/ML/MIN, Q3W)
     Route: 042
     Dates: start: 20191219, end: 20200214
  3. RED BLOOD CELLS [Concomitant]
     Active Substance: HUMAN RED BLOOD CELL
     Indication: ANAEMIA
     Dosage: 2 U, QD
     Route: 042
     Dates: start: 20200409, end: 20200409
  4. KETOPROFEN. [Concomitant]
     Active Substance: KETOPROFEN
     Indication: ABDOMINAL PAIN UPPER
     Dosage: 100 MG, PRN
     Route: 048
     Dates: start: 201912

REACTIONS (1)
  - Tuberculosis [Recovering/Resolving]

NARRATIVE: CASE EVENT DATE: 20200416
